FAERS Safety Report 5889288-8 (Version None)
Quarter: 2008Q3

REPORT INFORMATION
  Report Type: 
  Country: None (occurrence: None)
  Receive Date: 20080919
  Receipt Date: 20080908
  Transmission Date: 20090109
  Serious: Yes (Hospitalization)
  Sender: FDA-Public Use
  Company Number: JP-PURDUE-MAG_2008_0000721

PATIENT
  Age: 60 Year
  Sex: Female

DRUGS (5)
  1. OXYCODONE HCL [Suspect]
     Indication: CANCER PAIN
     Dosage: 5 MG, DAILY
     Route: 048
     Dates: start: 20080827, end: 20080828
  2. LENDORMIN [Concomitant]
     Indication: DRUG USE FOR UNKNOWN INDICATION
     Dosage: .25 MG, DAILY
     Route: 048
     Dates: start: 20070101
  3. LOXONIN [Concomitant]
     Indication: CANCER PAIN
     Dosage: 180 MG, DAILY
     Route: 048
     Dates: start: 20070101
  4. LORAZEPAM [Concomitant]
     Indication: DRUG USE FOR UNKNOWN INDICATION
     Dosage: 1.5 MG, DAILY
     Route: 048
     Dates: start: 20070101
  5. BIOFERMIN [Concomitant]
     Indication: DRUG USE FOR UNKNOWN INDICATION
     Dosage: 3 GRAM, DAILY
     Route: 048

REACTIONS (1)
  - HEPATIC FUNCTION ABNORMAL [None]
